FAERS Safety Report 18946541 (Version 7)
Quarter: 2025Q2

REPORT INFORMATION
  Report Type: Report from Study
  Country: US (occurrence: US)
  Receive Date: 20210226
  Receipt Date: 20250403
  Transmission Date: 20250716
  Serious: Yes (Death, Hospitalization, Other)
  Sender: TAKEDA
  Company Number: US-TAKEDA-2021TUS012524

PATIENT
  Age: 71 Year
  Sex: Male
  Weight: 95 kg

DRUGS (14)
  1. PONATINIB [Suspect]
     Active Substance: PONATINIB
     Indication: Chronic myeloid leukaemia
     Dosage: 45 MILLIGRAM, QD
     Dates: end: 20230422
  2. SPIRONOLACTONE [Concomitant]
     Active Substance: SPIRONOLACTONE
  3. METFORMIN [Concomitant]
     Active Substance: METFORMIN HYDROCHLORIDE
  4. GLIPIZIDE [Concomitant]
     Active Substance: GLIPIZIDE
  5. TORSEMIDE [Concomitant]
     Active Substance: TORSEMIDE
  6. ATORVASTATIN [Concomitant]
     Active Substance: ATORVASTATIN
  7. ALLOPURINOL [Concomitant]
     Active Substance: ALLOPURINOL
  8. LOSARTAN [Concomitant]
     Active Substance: LOSARTAN
  9. CLOPIDOGREL [Concomitant]
     Active Substance: CLOPIDOGREL BISULFATE
  10. CLONIDINE [Concomitant]
     Active Substance: CLONIDINE
  11. IRON [Concomitant]
     Active Substance: IRON
  12. CARVEDILOL [Concomitant]
     Active Substance: CARVEDILOL
  13. ASPIRIN [Concomitant]
     Active Substance: ASPIRIN
  14. FARXIGA [Concomitant]
     Active Substance: DAPAGLIFLOZIN PROPANEDIOL

REACTIONS (10)
  - Death [Fatal]
  - Blood pressure fluctuation [Unknown]
  - Heart rate increased [Unknown]
  - Ulcer haemorrhage [Unknown]
  - Muscular weakness [Unknown]
  - Hyperhidrosis [Unknown]
  - Neuropathy peripheral [Not Recovered/Not Resolved]
  - Diabetic neuropathy [Unknown]
  - Product dose omission issue [Unknown]
  - Fluid retention [Unknown]

NARRATIVE: CASE EVENT DATE: 20230422
